FAERS Safety Report 17509697 (Version 1)
Quarter: 2020Q1

REPORT INFORMATION
  Report Type: Spontaneous
  Country: US (occurrence: US)
  Receive Date: 20200306
  Receipt Date: 20200306
  Transmission Date: 20200409
  Serious: No
  Sender: FDA-Public Use
  Company Number: None

PATIENT
  Age: 32 Year
  Sex: Male
  Weight: 94.5 kg

DRUGS (5)
  1. TRUVADA [Suspect]
     Active Substance: EMTRICITABINE\TENOFOVIR DISOPROXIL FUMARATE
     Indication: PROPHYLAXIS AGAINST HIV INFECTION
     Dosage: ?          QUANTITY:1 TABLET(S);?
     Route: 048
  2. LISINOPRIL. [Concomitant]
     Active Substance: LISINOPRIL
  3. DESCOVY [Suspect]
     Active Substance: EMTRICITABINE\TENOFOVIR ALAFENAMIDE FUMARATE
     Indication: PROPHYLAXIS AGAINST HIV INFECTION
     Dosage: ?          QUANTITY:1 TABLET(S);?
     Route: 048
  4. MULTIVITAMIN [Concomitant]
     Active Substance: VITAMINS
  5. WELLBUTRIN [Concomitant]
     Active Substance: BUPROPION HYDROCHLORIDE

REACTIONS (5)
  - Hypoaesthesia [None]
  - Paraesthesia [None]
  - Toothache [None]
  - Arthralgia [None]
  - Pain [None]

NARRATIVE: CASE EVENT DATE: 20200219
